FAERS Safety Report 15827859 (Version 4)
Quarter: 2019Q2

REPORT INFORMATION
  Report Type: Spontaneous
  Country: AU (occurrence: AU)
  Receive Date: 20190115
  Receipt Date: 20190412
  Transmission Date: 20190711
  Serious: Yes (Other)
  Sender: FDA-Public Use
  Company Number: AU-MYLANLABS-2019M1003300

PATIENT
  Sex: Male

DRUGS (1)
  1. ASMOL CFC FREE [Suspect]
     Active Substance: ALBUTEROL SULFATE
     Indication: ASTHMA
     Dosage: UNK UNK, PRN (AS NEEDED DURING SUMMER MONTHS, PRN)

REACTIONS (2)
  - Product dose omission [Recovered/Resolved]
  - Device failure [Recovered/Resolved]
